FAERS Safety Report 17902775 (Version 4)
Quarter: 2022Q2

REPORT INFORMATION
  Report Type: Spontaneous
  Country: DK (occurrence: DK)
  Receive Date: 20200616
  Receipt Date: 20220412
  Transmission Date: 20220721
  Serious: Yes (Hospitalization, Other)
  Sender: FDA-Public Use
  Company Number: None

PATIENT
  Age: 23 Year
  Sex: Female

DRUGS (14)
  1. IOPAMIDOL [Suspect]
     Active Substance: IOPAMIDOL
     Dosage: UNK
  2. BUDESONIDE [Suspect]
     Active Substance: BUDESONIDE
     Indication: Asthma
     Dosage: STRENGTH: 200 MICROGRAMS/DOSE. DOSE: 1 INHALE MORNING AND 2 INHALES EVENING
     Route: 055
     Dates: start: 201610
  3. MOMETASONE FUROATE [Suspect]
     Active Substance: MOMETASONE FUROATE
     Indication: Eczema
     Dosage: 0.1 %, AS NECESSARY, 0.1 PERCENT, PRN (STRENGTH: 0.1 %)
     Route: 003
     Dates: start: 2013
  4. BUDESONIDE\FORMOTEROL FUMARATE [Suspect]
     Active Substance: BUDESONIDE\FORMOTEROL FUMARATE
     Indication: Asthma
     Dosage: 2 DF, QD; (STRENGTH: 9+320 MICROGRAMS/DOSE)
     Route: 055
     Dates: start: 20161014
  5. FLUTICASONE FUROATE [Suspect]
     Active Substance: FLUTICASONE FUROATE
     Indication: Rhinorrhoea
     Dosage: 27.5 ?G, QD (STRENGTH: 27.5 MICROGRAMS)
     Route: 045
     Dates: start: 20170111
  6. ALBUTEROL SULFATE [Concomitant]
     Active Substance: ALBUTEROL SULFATE
     Indication: Asthma
     Dosage: 200 ?G, QD; STRENGTH: 200 MICROGRAMS/DOSE
     Route: 055
     Dates: start: 20161014
  7. FLUTICASONE [Concomitant]
     Active Substance: FLUTICASONE
     Indication: Rhinorrhoea
     Dosage: 1 DF, QD; (STRENGTH: 27.5 MICROGRAMS)
     Route: 045
     Dates: start: 20170111
  8. ROXITHROMYCIN [Concomitant]
     Active Substance: ROXITHROMYCIN
     Indication: Otitis media
     Dosage: 300 MILLIGRAM, QD (STRENGTH: 300 MG)
     Route: 048
     Dates: start: 20171228, end: 20180226
  9. FEXOFENADINE [Concomitant]
     Active Substance: FEXOFENADINE HYDROCHLORIDE
     Indication: Seasonal allergy
     Dosage: 120 MILLIGRAM, QD (STRENGTH: 120 MG)
     Route: 048
     Dates: start: 20160425
  10. MONTELUKAST\MONTELUKAST SODIUM [Concomitant]
     Active Substance: MONTELUKAST\MONTELUKAST SODIUM
     Indication: Asthma
     Dosage: 10 MILLIGRAM, QD; (STRENGTH: 10 MG)
     Route: 048
     Dates: start: 20170111, end: 201711
  11. MILDISON LIPID [Concomitant]
     Indication: Rash
     Dosage: 2 DF, QD; 1 DOSAGE FORM, BID (DOSE: 1 APPLICATION TWICE DAILY. STRENGTH: 10 MG/G)
     Route: 003
     Dates: start: 20141006
  12. ETHINYL ESTRADIOL\LEVONORGESTREL [Concomitant]
     Active Substance: ETHINYL ESTRADIOL\LEVONORGESTREL
     Indication: Contraception
     Dosage: 1 DF, QD (STRENGTH: 0.15 + 0.03 MG)
     Route: 048
     Dates: start: 20170829, end: 201804
  13. DESLORATADINE [Concomitant]
     Active Substance: DESLORATADINE
     Indication: Seasonal allergy
     Dosage: STRENGTH: 5 MG
     Route: 048
     Dates: start: 20170111
  14. OLOPATADINE [Concomitant]
     Active Substance: OLOPATADINE
     Indication: Eye infection
     Dosage: 2 GTT DROPS, QD (STRENGTH: 1 MG/ML. DOSE: IN BOTH EYES)
     Route: 050
     Dates: start: 20170111

REACTIONS (16)
  - Abdominal pain [Unknown]
  - Immune system disorder [Unknown]
  - Dizziness [Unknown]
  - Blood pressure abnormal [Unknown]
  - Body temperature fluctuation [Unknown]
  - Depressed level of consciousness [Unknown]
  - Nausea [Unknown]
  - Muscular weakness [Unknown]
  - Loss of personal independence in daily activities [Unknown]
  - Adrenal insufficiency [Recovering/Resolving]
  - Fatigue [Recovering/Resolving]
  - Blood glucose abnormal [Unknown]
  - Affective disorder [Unknown]
  - Dyspnoea [Recovering/Resolving]
  - Arthralgia [Unknown]
  - Pruritus [Unknown]

NARRATIVE: CASE EVENT DATE: 20170101
